FAERS Safety Report 9536018 (Version 1)
Quarter: 2013Q2

REPORT INFORMATION
  Report Type: Spontaneous
  Country: US (occurrence: None)
  Receive Date: 20130517
  Receipt Date: 20130517
  Transmission Date: 20140414
  Serious: Yes (Other)
  Sender: FDA-Public Use
  Company Number: 1000043906

PATIENT
  Age: 59 Year
  Sex: Male

DRUGS (11)
  1. VIIBRYD (VILAZODONE HYDROCHLORIDE) (TABLETS) [Suspect]
     Dosage: 10 MG (10 MG, 1 IN 1 D), ORAL
     Route: 048
  2. METFORMIN (METFORMIN) (METFORMIN) [Concomitant]
  3. GLYBURIDE (GLIBENCLAMIDE) (GLIBENCLAMIDE)) [Concomitant]
  4. GLYBURIDE (GLIBENCLAMIDE) (GLIBENCLAMIDE) [Concomitant]
  5. LANTUS (INSULIN GLARGINE) (INSULIN GLARGINE) [Concomitant]
  6. XANAX [Concomitant]
  7. CYMBALTA (DULOXETINE HYDROCHLORIDE) (DULOXETINE HYDROCHLORIDE) [Concomitant]
  8. CARVEDILOL (CARVEDILOL) (CARVEDILOL) [Concomitant]
  9. METOPROLOL (METOPROLOL) (METOPROLOL) [Concomitant]
  10. LISINOPRIL (LISINOPRIL) (LISINOPRIL) [Concomitant]
  11. LIPITOR (ATORVASTATIN CALCIUM) (ATORVASTATIN CALCIUM) [Concomitant]

REACTIONS (1)
  - Blood glucose increased [None]
